FAERS Safety Report 5894153-6 (Version None)
Quarter: 2008Q3

REPORT INFORMATION
  Report Type: 
  Country: None (occurrence: None)
  Receive Date: 20080923
  Receipt Date: 20080709
  Transmission Date: 20090109
  Serious: No
  Sender: FDA-Public Use
  Company Number: US-ASTRAZENECA-2008UW02424

PATIENT
  Age: 48 Year
  Sex: Male
  Weight: 95.5 kg

DRUGS (5)
  1. SEROQUEL [Suspect]
     Indication: DEPRESSION
     Dosage: VARIOUS (INCLUDING BUT NOT LIMITED TO 100 MG)
     Route: 048
     Dates: start: 20040201, end: 20070101
  2. ABILIFY [Concomitant]
     Dates: start: 19800101
  3. HALDOL [Concomitant]
     Dates: start: 19800101
  4. THORAZINE [Concomitant]
     Dates: start: 19800101
  5. PAXIL [Concomitant]
     Dates: start: 20040101

REACTIONS (3)
  - DIABETES MELLITUS [None]
  - HERNIA [None]
  - LIVER DISORDER [None]
